FAERS Safety Report 15218518 (Version 1)
Quarter: 2018Q3

REPORT INFORMATION
  Report Type: Spontaneous
  Country: US (occurrence: US)
  Receive Date: 20180730
  Receipt Date: 20180730
  Transmission Date: 20181010
  Serious: No
  Sender: FDA-Public Use
  Company Number: US-009507513-1807USA001475

PATIENT
  Age: 40 Year
  Sex: Female
  Weight: 77.1 kg

DRUGS (4)
  1. NUVARING [Suspect]
     Active Substance: ETHINYL ESTRADIOL\ETONOGESTREL
     Indication: MENSTRUATION IRREGULAR
  2. TIROSINT [Concomitant]
     Active Substance: LEVOTHYROXINE SODIUM
  3. NUVARING [Suspect]
     Active Substance: ETHINYL ESTRADIOL\ETONOGESTREL
     Indication: CONTRACEPTION
     Dosage: UNK, QM
     Route: 067
     Dates: start: 20180617
  4. NUVARING [Suspect]
     Active Substance: ETHINYL ESTRADIOL\ETONOGESTREL
     Indication: PREMENSTRUAL SYNDROME

REACTIONS (3)
  - Breast pain [Unknown]
  - Product use in unapproved indication [Unknown]
  - Breast swelling [Unknown]

NARRATIVE: CASE EVENT DATE: 20180617
